FAERS Safety Report 9217505 (Version 2)
Quarter: 2013Q2

REPORT INFORMATION
  Report Type: Spontaneous
  Country: US (occurrence: None)
  Receive Date: 20130404
  Receipt Date: 20130422
  Transmission Date: 20140414
  Serious: Yes (Hospitalization)
  Sender: FDA-Public Use
  Company Number: JPI-P-030766

PATIENT
  Age: 34 Year
  Sex: Male
  Weight: 86.18 kg

DRUGS (7)
  1. XYREM (500 MILLIGRAM/MILLILITERS, SOLUTION) (SODIUM OXYBATE) [Suspect]
     Indication: NARCOLEPSY
     Route: 048
     Dates: start: 20070329
  2. XYREM (500 MILLIGRAM/MILLILITERS, SOLUTION) (SODIUM OXYBATE) [Suspect]
     Indication: SOMNOLENCE
     Route: 048
     Dates: start: 20070329
  3. MODAFINIL [Concomitant]
  4. METHYLPHENIDATE HYDROCHLORIDE [Concomitant]
  5. CLONAZEPAM [Concomitant]
  6. QUETIAPINE FUMARATE [Concomitant]
  7. OLANZAPINE [Concomitant]

REACTIONS (3)
  - Empyema [None]
  - Pneumonia [None]
  - Chest pain [None]
